FAERS Safety Report 14020029 (Version 1)
Quarter: 2017Q3

REPORT INFORMATION
  Report Type: Spontaneous
  Country: CN (occurrence: CN)
  Receive Date: 20170928
  Receipt Date: 20170928
  Transmission Date: 20171128
  Serious: Yes (Other)
  Sender: FDA-Public Use
  Company Number: CN-JNJFOC-20170922761

PATIENT
  Age: 36 Year
  Sex: Male
  Weight: 80 kg

DRUGS (3)
  1. RISPERDAL [Suspect]
     Active Substance: RISPERIDONE
     Indication: MENTAL DISORDER
     Route: 048
     Dates: start: 20161130, end: 20170104
  2. BIFENDATE [Concomitant]
     Active Substance: BIFENDATE
     Route: 048
     Dates: start: 20161102, end: 20170104
  3. RISPERDAL [Suspect]
     Active Substance: RISPERIDONE
     Indication: MENTAL DISORDER
     Route: 048
     Dates: start: 20161102, end: 201611

REACTIONS (2)
  - Sinus bradycardia [Recovering/Resolving]
  - Arrhythmia [Recovering/Resolving]

NARRATIVE: CASE EVENT DATE: 20161207
